FAERS Safety Report 7275765-4 (Version None)
Quarter: 2011Q1

REPORT INFORMATION
  Report Type: 
  Country: None (occurrence: None)
  Receive Date: 20110204
  Receipt Date: 20110124
  Transmission Date: 20110831
  Serious: Yes (Hospitalization, Disabling, Other)
  Sender: FDA-Public Use
  Company Number: US-MERCK-0901USA04184

PATIENT
  Age: 53 Year
  Sex: Female
  Weight: 56 kg

DRUGS (4)
  1. FOSAMAX [Suspect]
     Route: 048
     Dates: start: 20010701, end: 20011021
  2. FOSAMAX [Suspect]
     Indication: OSTEOPOROSIS
     Route: 048
     Dates: start: 19980820, end: 20010701
  3. FOSAMAX PLUS D [Suspect]
     Indication: OSTEOPOROSIS
     Route: 048
     Dates: start: 20070101, end: 20080219
  4. VITAMINS (UNSPECIFIED) [Concomitant]
     Route: 065

REACTIONS (51)
  - GASTROINTESTINAL DISORDER [None]
  - ASTHENIA [None]
  - BACK PAIN [None]
  - GAIT DISTURBANCE [None]
  - PAIN IN EXTREMITY [None]
  - RADICULOPATHY [None]
  - FOOT DEFORMITY [None]
  - JOINT EFFUSION [None]
  - ADVERSE DRUG REACTION [None]
  - JOINT SPRAIN [None]
  - PYREXIA [None]
  - HYPOAESTHESIA [None]
  - LIMB ASYMMETRY [None]
  - BURSITIS [None]
  - SKIN BACTERIAL INFECTION [None]
  - IRRITABLE BOWEL SYNDROME [None]
  - HYPERCHOLESTEROLAEMIA [None]
  - FALL [None]
  - HYPERTENSION [None]
  - FOOT FRACTURE [None]
  - FRACTURE DELAYED UNION [None]
  - FEMUR FRACTURE [None]
  - HAEMORRHAGIC ANAEMIA [None]
  - FEMORAL NECK FRACTURE [None]
  - METRORRHAGIA [None]
  - PATELLA FRACTURE [None]
  - NEUROPATHY PERIPHERAL [None]
  - MYELOPATHY [None]
  - MITRAL VALVE PROLAPSE [None]
  - MUSCULAR WEAKNESS [None]
  - SPINAL DISORDER [None]
  - ANXIETY [None]
  - GROIN PAIN [None]
  - PAIN [None]
  - NEUROGENIC BLADDER [None]
  - CALCIUM DEFICIENCY [None]
  - PATELLOFEMORAL PAIN SYNDROME [None]
  - CONSTIPATION [None]
  - GENE MUTATION [None]
  - PARAESTHESIA [None]
  - LORDOSIS [None]
  - HYPERSENSITIVITY [None]
  - HERPES ZOSTER [None]
  - CEREBRAL ISCHAEMIA [None]
  - DEAFNESS [None]
  - NERVE INJURY [None]
  - URINARY TRACT INFECTION [None]
  - TINNITUS [None]
  - SEXUAL DYSFUNCTION [None]
  - POLYP [None]
  - CYST [None]
